FAERS Safety Report 10188677 (Version 1)
Quarter: 2014Q2

REPORT INFORMATION
  Report Type: Spontaneous
  Country: US (occurrence: US)
  Receive Date: 20140522
  Receipt Date: 20140522
  Transmission Date: 20141212
  Serious: No
  Sender: FDA-Public Use
  Company Number: US-SA-2014SA018638

PATIENT
  Age: 48 Year
  Sex: Male
  Weight: 174.63 kg

DRUGS (23)
  1. LANTUS SOLOSTAR [Suspect]
     Indication: TYPE 2 DIABETES MELLITUS
     Dosage: DOSE:10 UNIT(S)
     Route: 058
  2. LANTUS SOLOSTAR [Suspect]
     Indication: TYPE 2 DIABETES MELLITUS
     Dosage: DOSE:20 UNIT(S)
     Route: 058
     Dates: start: 20140131
  3. LANTUS SOLOSTAR [Suspect]
     Indication: TYPE 2 DIABETES MELLITUS
     Dosage: DOSE:25 UNIT(S)
     Route: 058
  4. SOLOSTAR [Concomitant]
     Indication: TYPE 2 DIABETES MELLITUS
     Dates: start: 20140131
  5. AMIODARONE [Concomitant]
     Indication: HEART RATE ABNORMAL
     Route: 065
     Dates: start: 2013
  6. METOPROLOL TARTRATE [Concomitant]
     Indication: HEART RATE
     Route: 065
     Dates: start: 2012
  7. K-LOR [Concomitant]
     Indication: BLOOD POTASSIUM DECREASED
     Route: 065
     Dates: start: 2001
  8. DILTIAZEM [Concomitant]
     Indication: MYOCARDIAL INFARCTION
     Route: 065
     Dates: start: 2001
  9. ALLOPURINOL [Concomitant]
     Indication: GOUT
     Route: 065
     Dates: start: 2010
  10. LASIX [Concomitant]
     Indication: CARDIAC FAILURE CONGESTIVE
     Route: 065
  11. LASIX [Concomitant]
     Indication: FLUID RETENTION
     Route: 065
  12. OMEPRAZOLE [Concomitant]
     Indication: GASTROOESOPHAGEAL REFLUX DISEASE
     Route: 065
  13. HYDROCHLOROTHIAZIDE [Concomitant]
     Indication: CARDIAC FAILURE CONGESTIVE
     Route: 065
  14. HYDROCHLOROTHIAZIDE [Concomitant]
     Indication: FLUID RETENTION
     Route: 065
  15. GLYBURIDE [Concomitant]
     Indication: DIABETES MELLITUS
     Route: 065
     Dates: start: 2008
  16. WARFARIN [Concomitant]
     Route: 065
     Dates: start: 2001
  17. ATORVASTATIN [Concomitant]
     Route: 065
     Dates: start: 2001
  18. FLUOXETINE [Concomitant]
     Route: 065
     Dates: start: 2013
  19. BENADRYL [Concomitant]
     Route: 065
     Dates: start: 2010
  20. FERROUS SULFATE [Concomitant]
     Indication: BLOOD IRON DECREASED
     Route: 065
     Dates: start: 2008
  21. ALL OTHER THERAPEUTIC PRODUCTS [Concomitant]
     Route: 065
     Dates: start: 2001
  22. MULTIVITAMINS [Concomitant]
     Route: 065
     Dates: start: 2001
  23. ACETYLSALICYLIC ACID [Concomitant]
     Route: 065

REACTIONS (3)
  - Headache [Unknown]
  - Drug ineffective [Unknown]
  - Blood glucose increased [Unknown]
